FAERS Safety Report 8842728 (Version 5)
Quarter: 2013Q1

REPORT INFORMATION
  Report Type: Report from Study
  Country: US (occurrence: US)
  Receive Date: 20121016
  Receipt Date: 20130102
  Transmission Date: 20140127
  Serious: No
  Sender: FDA-Public Use
  Company Number: US-VERTEX PHARMACEUTICAL INC.-2012-022370

PATIENT
  Age: 58 Year
  Sex: Female
  Weight: 79 kg

DRUGS (5)
  1. VX-950 (TELAPREVIR) [Suspect]
     Indication: HEPATITIS C
     Dosage: 750 MG, TID
     Route: 048
     Dates: start: 20120816, end: 20121107
  2. RIBAPAK [Suspect]
     Indication: HEPATITIS C
     Dosage: 600 MG, BID
     Route: 048
     Dates: start: 20120816
  3. PEGASYS [Suspect]
     Indication: HEPATITIS C
     Dosage: 180 ?G, QW
     Route: 058
     Dates: start: 20120817
  4. AMBIEN [Concomitant]
     Dosage: 10 MG, PRN
     Route: 048
  5. PRILOSEC                           /00661201/ [Concomitant]
     Dosage: 20 MG, QD

REACTIONS (14)
  - Inappropriate schedule of drug administration [Unknown]
  - Depression [Unknown]
  - Dizziness [Unknown]
  - Arthralgia [Not Recovered/Not Resolved]
  - Dry skin [Unknown]
  - Crying [Unknown]
  - Asthenia [Unknown]
  - Fatigue [Unknown]
  - Rash generalised [Unknown]
  - Nausea [Unknown]
  - Diarrhoea [Recovered/Resolved]
  - Proctalgia [Recovered/Resolved]
  - Haemorrhoids [Recovered/Resolved]
  - Anaemia [Not Recovered/Not Resolved]
